FAERS Safety Report 15280663 (Version 2)
Quarter: 2018Q3

REPORT INFORMATION
  Report Type: Spontaneous
  Country: US (occurrence: US)
  Receive Date: 20180815
  Receipt Date: 20180828
  Transmission Date: 20181010
  Serious: No
  Sender: FDA-Public Use
  Company Number: US-BEH-2018093788

PATIENT
  Age: 73 Year
  Sex: Female

DRUGS (1)
  1. HIZENTRA [Suspect]
     Active Substance: HUMAN IMMUNOGLOBULIN G
     Indication: CHRONIC INFLAMMATORY DEMYELINATING POLYRADICULONEUROPATHY
     Dosage: 5 G, BIW
     Route: 058
     Dates: start: 20161114

REACTIONS (3)
  - Infusion site erythema [Unknown]
  - Chills [Unknown]
  - Infusion site warmth [Unknown]

NARRATIVE: CASE EVENT DATE: 20180812
